FAERS Safety Report 4494878-3 (Version None)
Quarter: 2004Q4

REPORT INFORMATION
  Report Type: 
  Country: None (occurrence: None)
  Receive Date: 20041103
  Receipt Date: 20041026
  Transmission Date: 20050328
  Serious: Yes (Other)
  Sender: FDA-Public Use
  Company Number: HQWYE136621SEP04

PATIENT
  Age: 54 Year
  Sex: Female
  Weight: 149.82 kg

DRUGS (1)
  1. EFFEXOR XR [Suspect]
     Dosage: 37.5 MG
     Dates: start: 20021111, end: 20021202

REACTIONS (11)
  - ATRIOVENTRICULAR BLOCK COMPLETE [None]
  - BRADYCARDIA [None]
  - CARDIOMYOPATHY [None]
  - DIAPHRAGMATIC DISORDER [None]
  - DIARRHOEA [None]
  - DIFFICULTY IN WALKING [None]
  - DIZZINESS [None]
  - DYSPNOEA EXERTIONAL [None]
  - LOSS OF CONSCIOUSNESS [None]
  - PAIN [None]
  - SYNCOPE [None]
